FAERS Safety Report 11513298 (Version 1)
Quarter: 2015Q3

REPORT INFORMATION
  Report Type: Spontaneous
  Country: US (occurrence: None)
  Receive Date: 20150915
  Receipt Date: 20150915
  Transmission Date: 20151125
  Serious: Yes (Disabling)
  Sender: FDA-Public Use
  Company Number: None

PATIENT
  Age: 70 Year
  Sex: Female
  Weight: 68.04 kg

DRUGS (3)
  1. LEVOFLOXACIN. [Suspect]
     Active Substance: LEVOFLOXACIN
     Indication: KIDNEY INFECTION
     Dosage: 1 X DAY
     Route: 048
     Dates: start: 20150802, end: 20150805
  2. VAGIFEN [Concomitant]
  3. CENTRUM [Concomitant]
     Active Substance: VITAMINS

REACTIONS (2)
  - Quality of life decreased [None]
  - Tendonitis [None]

NARRATIVE: CASE EVENT DATE: 20150805
